FAERS Safety Report 4488990-2 (Version None)
Quarter: 2004Q4

REPORT INFORMATION
  Report Type: 
  Country: None (occurrence: None)
  Receive Date: 20041029
  Receipt Date: 20041019
  Transmission Date: 20050328
  Serious: Yes (Death)
  Sender: FDA-Public Use
  Company Number: US-BRISTOL-MYERS SQUIBB COMPANY-12741401

PATIENT
  Age: 51 Year

DRUGS (3)
  1. BUSPIRONE HCL [Suspect]
     Route: 048
  2. LAMOTRIGINE [Suspect]
     Route: 048
  3. QUETIAPINE [Suspect]
     Route: 048

REACTIONS (1)
  - ADVERSE DRUG REACTION [None]
